FAERS Safety Report 6424706-8 (Version None)
Quarter: 2009Q4

REPORT INFORMATION
  Report Type: 
  Country: None (occurrence: None)
  Receive Date: 20091102
  Receipt Date: 20091102
  Transmission Date: 20100525
  Serious: No
  Sender: FDA-Public Use
  Company Number: None

PATIENT
  Age: 67 Year

DRUGS (1)
  1. SPIRONOLACTONE [Suspect]
     Indication: HYPERTENSION
     Dosage: 25 MG EVERYDAY PO
     Route: 048
     Dates: start: 20080627, end: 20080930

REACTIONS (2)
  - NIPPLE PAIN [None]
  - NIPPLE SWELLING [None]
